FAERS Safety Report 4678522-8 (Version None)
Quarter: 2005Q2

REPORT INFORMATION
  Report Type: 
  Country: None (occurrence: None)
  Receive Date: 20050601
  Receipt Date: 20050518
  Transmission Date: 20051028
  Serious: Yes (Hospitalization)
  Sender: FDA-Public Use
  Company Number: ES-AMGEN-UK133980

PATIENT
  Sex: Female

DRUGS (1)
  1. AMG 099073 [Suspect]
     Indication: HYPERPARATHYROIDISM SECONDARY
     Route: 048
     Dates: start: 20041027

REACTIONS (4)
  - EMOTIONAL DISTRESS [None]
  - EPISTAXIS [None]
  - HYPERTENSIVE CRISIS [None]
  - TACHYCARDIA [None]
